FAERS Safety Report 5565784-8 (Version None)
Quarter: 2007Q4

REPORT INFORMATION
  Report Type: 
  Country: None (occurrence: None)
  Receive Date: 20071213
  Receipt Date: 20071207
  Transmission Date: 20080405
  Serious: Yes (Death, Hospitalization, Other)
  Sender: FDA-Public Use
  Company Number: 163-21880-07110564

PATIENT
  Age: 70 Year
  Sex: Female
  Weight: 56.6996 kg

DRUGS (10)
  1. REVLIMID [Suspect]
     Indication: ACUTE MYELOID LEUKAEMIA
     Dosage: 25 MG, OD, ORAL, 25 MG, 1 IN 1 D, ORAL 10 MG, 1 IN 1 D, ORAL
     Route: 048
     Dates: start: 20070907, end: 20071004
  2. REVLIMID [Suspect]
     Indication: ACUTE MYELOID LEUKAEMIA
     Dosage: 25 MG, OD, ORAL, 25 MG, 1 IN 1 D, ORAL 10 MG, 1 IN 1 D, ORAL
     Route: 048
     Dates: start: 20070725
  3. REVLIMID [Suspect]
     Indication: ACUTE MYELOID LEUKAEMIA
     Dosage: 25 MG, OD, ORAL, 25 MG, 1 IN 1 D, ORAL 10 MG, 1 IN 1 D, ORAL
     Route: 048
     Dates: start: 20071016
  4. MULTIVITAMIN [Concomitant]
  5. PRILOSEC [Concomitant]
  6. LASIX [Concomitant]
  7. LEXAPRO [Concomitant]
  8. ZETIA [Concomitant]
  9. SYNTHROID [Concomitant]
  10. MS CONTIN [Concomitant]

REACTIONS (8)
  - ANAEMIA [None]
  - DISEASE PROGRESSION [None]
  - MALIGNANT MELANOMA [None]
  - METASTATIC MALIGNANT MELANOMA [None]
  - PLEURAL EFFUSION [None]
  - PULMONARY EMBOLISM [None]
  - RESPIRATORY FAILURE [None]
  - THROMBOCYTOPENIA [None]
